FAERS Safety Report 18568833 (Version 1)
Quarter: 2020Q4

REPORT INFORMATION
  Report Type: Spontaneous
  Country: US (occurrence: US)
  Receive Date: 20201202
  Receipt Date: 20201202
  Transmission Date: 20210114
  Serious: No
  Sender: FDA-Public Use
  Company Number: US-HIKMA PHARMACEUTICALS USA INC.-US-H14001-20-02737

PATIENT
  Sex: Female
  Weight: 54.48 kg

DRUGS (3)
  1. METHAMPHETAMINE [Suspect]
     Active Substance: METHAMPHETAMINE
     Indication: NARCOLEPSY
     Dosage: 65 MG EVERY MORNING, THEN THREE SUBSEQUENT DOSES OF 25 MG
     Route: 048
     Dates: start: 2015
  2. LUNESTA [Concomitant]
     Active Substance: ESZOPICLONE
     Indication: PRODUCT USED FOR UNKNOWN INDICATION
     Route: 065
  3. METHAMPHETAMINE [Suspect]
     Active Substance: METHAMPHETAMINE
     Route: 002

REACTIONS (2)
  - Product dose omission issue [Unknown]
  - Off label use [Unknown]
